FAERS Safety Report 8154825-X (Version None)
Quarter: 2012Q1

REPORT INFORMATION
  Report Type: 
  Country: None (occurrence: None)
  Receive Date: 20120221
  Receipt Date: 20120213
  Transmission Date: 20120608
  Serious: Yes (Hospitalization)
  Sender: FDA-Public Use
  Company Number: PHEH2012US002883

PATIENT
  Sex: Male

DRUGS (12)
  1. ALPRAZOLAM [Concomitant]
  2. SERTRALINE HYDROCHLORIDE [Concomitant]
  3. ASPIRIN [Concomitant]
  4. MULTI-VITAMIN [Concomitant]
  5. EXELON [Suspect]
  6. LISINOPRIL [Concomitant]
  7. ARICEPT [Concomitant]
  8. PRAVASTATIN [Concomitant]
  9. EXELON [Suspect]
     Dosage: 4.6 MG, 1 PATCH DAILY
     Route: 062
  10. COQ10 [Concomitant]
  11. VITAMIN E [Concomitant]
  12. ZOLOFT [Concomitant]

REACTIONS (2)
  - INCORRECT DOSE ADMINISTERED [None]
  - NEPHROLITHIASIS [None]
